FAERS Safety Report 6891711-7 (Version None)
Quarter: 2010Q3

REPORT INFORMATION
  Report Type: 
  Country: None (occurrence: None)
  Receive Date: 20100731
  Receipt Date: 20071025
  Transmission Date: 20110219
  Serious: No
  Sender: FDA-Public Use
  Company Number: US-PFIZER INC-2007075548

PATIENT
  Sex: Male
  Weight: 97.5 kg

DRUGS (6)
  1. CAVERJECT [Suspect]
     Indication: ERECTILE DYSFUNCTION
     Route: 011
     Dates: start: 20070906
  2. VIAGRA [Suspect]
     Indication: ERECTILE DYSFUNCTION
     Dates: start: 20070701
  3. LANTUS [Concomitant]
  4. NOVOLOG [Concomitant]
  5. ACTOS [Concomitant]
  6. SYNTHROID [Concomitant]

REACTIONS (1)
  - DRUG INEFFECTIVE [None]
